FAERS Safety Report 6133740-7 (Version None)
Quarter: 2009Q1

REPORT INFORMATION
  Report Type: 
  Country: None (occurrence: None)
  Receive Date: 20090326
  Receipt Date: 20090317
  Transmission Date: 20090719
  Serious: Yes (Hospitalization)
  Sender: FDA-Public Use
  Company Number: DE-ABBOTT-09P-062-0563261-00

PATIENT
  Sex: Female
  Weight: 47 kg

DRUGS (1)
  1. HUMIRA [Suspect]
     Indication: RHEUMATOID ARTHRITIS
     Route: 058
     Dates: start: 20080319, end: 20090218

REACTIONS (5)
  - ANGIOEDEMA [None]
  - HERPES ZOSTER [None]
  - NASOPHARYNGITIS [None]
  - PYREXIA [None]
  - SINUSITIS [None]
